FAERS Safety Report 23411021 (Version 1)
Quarter: 2024Q1

REPORT INFORMATION
  Report Type: Spontaneous
  Country: US (occurrence: None)
  Receive Date: 20240116
  Receipt Date: 20240116
  Transmission Date: 20240410
  Serious: Yes (Life-Threatening, Disabling, Other)
  Sender: FDA-Public Use
  Company Number: None

PATIENT
  Age: 69 Year
  Sex: Female
  Weight: 87.3 kg

DRUGS (9)
  1. RECLAST [Suspect]
     Active Substance: ZOLEDRONIC ACID
     Indication: Osteoporosis
     Dosage: OTHER FREQUENCY : ONCE A YEAR;?
     Route: 042
  2. DILTIAZEM [Concomitant]
     Active Substance: DILTIAZEM
  3. ZETIA [Concomitant]
     Active Substance: EZETIMIBE
  4. CRESTOR [Concomitant]
     Active Substance: ROSUVASTATIN CALCIUM
  5. TELMISARTAN [Concomitant]
     Active Substance: TELMISARTAN
  6. ELIQUIS [Concomitant]
     Active Substance: APIXABAN
  7. HUMIRA [Concomitant]
     Active Substance: ADALIMUMAB
  8. CALCIUM CITRATE [Concomitant]
     Active Substance: CALCIUM CITRATE
  9. COENZYME Q10 [Concomitant]
     Active Substance: DIETARY SUPPLEMENT\UBIDECARENONE

REACTIONS (11)
  - Infusion related reaction [None]
  - Inflammation [None]
  - Arthritis [None]
  - Gait inability [None]
  - Atrial fibrillation [None]
  - Brain natriuretic peptide increased [None]
  - Weight increased [None]
  - Blood pressure increased [None]
  - Quality of life decreased [None]
  - Disease complication [None]
  - Product communication issue [None]

NARRATIVE: CASE EVENT DATE: 20230717
